FAERS Safety Report 4731839-0 (Version None)
Quarter: 2005Q3

REPORT INFORMATION
  Report Type: 
  Country: None (occurrence: None)
  Receive Date: 20050725
  Receipt Date: 20050331
  Transmission Date: 20060218
  Serious: Yes (Disabling)
  Sender: FDA-Public Use
  Company Number: WAES 0503USA05324

PATIENT
  Sex: Female

DRUGS (2)
  1. VIOXX [Suspect]
     Indication: ARTHRITIS
     Dosage: 25 MG/DAILY/PO
     Route: 048
     Dates: start: 19990101, end: 20010101
  2. VIOXX [Suspect]
     Indication: FIBROMYALGIA
     Dosage: 25 MG/DAILY/PO
     Route: 048
     Dates: start: 19990101, end: 20010101

REACTIONS (1)
  - ADVERSE EVENT [None]
